FAERS Safety Report 11444906 (Version 1)
Quarter: 2015Q3

REPORT INFORMATION
  Report Type: Spontaneous
  Country: US (occurrence: US)
  Receive Date: 20150902
  Receipt Date: 20150902
  Transmission Date: 20151125
  Serious: No
  Sender: FDA-Public Use
  Company Number: US-TEVA-590511ACC

PATIENT
  Age: 19 Year
  Sex: Female
  Weight: 82.63 kg

DRUGS (1)
  1. PLAN B ONE-STEP [Suspect]
     Active Substance: LEVONORGESTREL
     Indication: POST COITAL CONTRACEPTION
     Dates: start: 20150817, end: 20150817

REACTIONS (2)
  - Menstruation delayed [Not Recovered/Not Resolved]
  - Intentional product misuse [Unknown]

NARRATIVE: CASE EVENT DATE: 20150819
